FAERS Safety Report 13258393 (Version 1)
Quarter: 2017Q1

REPORT INFORMATION
  Report Type: Spontaneous
  Country: IT (occurrence: IT)
  Receive Date: 20170222
  Receipt Date: 20170222
  Transmission Date: 20170428
  Serious: Yes (Life-Threatening, Other)
  Sender: FDA-Public Use
  Company Number: IT-BRISTOL-MYERS SQUIBB COMPANY-BMS-2017-012575

PATIENT
  Age: 79 Year
  Sex: Male
  Weight: 67 kg

DRUGS (1)
  1. OPDIVO [Suspect]
     Active Substance: NIVOLUMAB
     Indication: LUNG NEOPLASM MALIGNANT
     Dosage: 200 MG, QCYCLE
     Route: 042
     Dates: start: 20160619

REACTIONS (5)
  - Colectomy [Unknown]
  - Peritonitis [Unknown]
  - Septic shock [Unknown]
  - Diverticular perforation [Recovering/Resolving]
  - Abscess intestinal [Unknown]

NARRATIVE: CASE EVENT DATE: 20170113
